FAERS Safety Report 7111991-2 (Version None)
Quarter: 2010Q4

REPORT INFORMATION
  Report Type: 
  Country: None (occurrence: None)
  Receive Date: 20101119
  Receipt Date: 20101108
  Transmission Date: 20110411
  Serious: Yes (Other)
  Sender: FDA-Public Use
  Company Number: US-JNJFOC-20100908520

PATIENT
  Sex: Male
  Weight: 73.48 kg

DRUGS (7)
  1. REMICADE [Suspect]
     Indication: PSORIATIC ARTHROPATHY
     Route: 042
  2. UNKNOWN MEDICATION [Suspect]
     Indication: PSORIATIC ARTHROPATHY
     Route: 058
  3. LISINOPRIL [Concomitant]
     Indication: HYPERTENSION
     Route: 048
  4. ASPIRIN [Concomitant]
     Indication: CEREBROVASCULAR ACCIDENT
     Route: 048
  5. ALENDRONATE SODIUM [Concomitant]
     Indication: OSTEOPOROSIS
  6. VITAMIN TAB [Concomitant]
     Route: 048
  7. VITAMIN D3 [Concomitant]
     Indication: NUTRITIONAL SUPPORT
     Dosage: 2000 UNITS

REACTIONS (4)
  - CHEST PAIN [None]
  - DRUG INEFFECTIVE [None]
  - FATIGUE [None]
  - RENAL PAIN [None]
